FAERS Safety Report 8370153-1 (Version None)
Quarter: 2012Q1

REPORT INFORMATION
  Report Type: 
  Country: None (occurrence: None)
  Receive Date: 20120323
  Receipt Date: 20111115
  Transmission Date: 20120608
  Serious: Yes (Other)
  Sender: FDA-Public Use
  Company Number: 163-21880-11081253

PATIENT
  Age: 60 Year
  Sex: Female
  Weight: 58.0604 kg

DRUGS (10)
  1. ACYCLOVIR [Concomitant]
  2. DEXAMETHASONE [Concomitant]
  3. IBUPROFEN (ADVIL) [Concomitant]
  4. NEURONTIN [Concomitant]
  5. ZOFRAN [Concomitant]
  6. REVLIMID [Suspect]
     Indication: MULTIPLE MYELOMA
     Dosage: 5 MG, DAILY X 21 DAYS, PO
     Route: 048
     Dates: start: 20110329
  7. EXCEDRIN (EXCEDRIN) [Concomitant]
  8. MELPHALAN HYDROCHLORIDE [Concomitant]
  9. LORAZEPAM [Concomitant]
  10. METOPROLOL TARTRATE [Concomitant]

REACTIONS (2)
  - MULTIPLE MYELOMA [None]
  - NEUTROPENIA [None]
